FAERS Safety Report 6910241-7 (Version None)
Quarter: 2010Q3

REPORT INFORMATION
  Report Type: 
  Country: None (occurrence: None)
  Receive Date: 20100806
  Receipt Date: 20100706
  Transmission Date: 20110219
  Serious: No
  Sender: FDA-Public Use
  Company Number: US-BAYER-201017870BCC

PATIENT
  Age: 79 Year
  Sex: Female
  Weight: 79 kg

DRUGS (6)
  1. ALEVE [Suspect]
     Indication: ARTHRALGIA
     Dosage: TOTAL DAILY DOSE: 220 MG  UNIT DOSE: 220 MG
     Route: 048
     Dates: start: 20100101
  2. ADVAIR DISKUS 100/50 [Concomitant]
     Route: 065
  3. SYNTHROID [Concomitant]
     Route: 065
  4. VASOTEC [Concomitant]
     Route: 065
  5. ALENDRONATE SODIUM [Concomitant]
     Route: 065
  6. COD LIVER OIL [Concomitant]
     Route: 065

REACTIONS (1)
  - ARTHRALGIA [None]
